FAERS Safety Report 16834731 (Version 1)
Quarter: 2019Q3

REPORT INFORMATION
  Report Type: Spontaneous
  Country: US (occurrence: US)
  Receive Date: 20190920
  Receipt Date: 20190920
  Transmission Date: 20191005
  Serious: Yes (Other)
  Sender: FDA-Public Use
  Company Number: PHHY2019US216163

PATIENT
  Age: 18 Year
  Sex: Male

DRUGS (5)
  1. LOPRESOR [Suspect]
     Active Substance: METOPROLOL
     Indication: ARRHYTHMIA
  2. AMIODARONE [Suspect]
     Active Substance: AMIODARONE
     Indication: CARDIOMYOPATHY
  3. LOPRESOR [Suspect]
     Active Substance: METOPROLOL
     Indication: CARDIOMYOPATHY
     Dosage: UNK UNK, UNKNOWN
     Route: 065
  4. AMIODARONE [Suspect]
     Active Substance: AMIODARONE
     Indication: ARRHYTHMIA
     Dosage: UNK
     Route: 065
  5. IBUPROFEN. [Suspect]
     Active Substance: IBUPROFEN
     Indication: PAIN
     Dosage: UNK
     Route: 065

REACTIONS (1)
  - Drug ineffective [Unknown]
